FAERS Safety Report 25882898 (Version 1)
Quarter: 2025Q4

REPORT INFORMATION
  Report Type: Spontaneous
  Country: US (occurrence: US)
  Receive Date: 20251006
  Receipt Date: 20251006
  Transmission Date: 20260119
  Serious: No
  Sender: AJANTA PHARMA USA INC
  Company Number: US-AJANTA-2025AJA00128

PATIENT
  Sex: Female
  Weight: 250 kg

DRUGS (71)
  1. DULOXETINE [Suspect]
     Active Substance: DULOXETINE
     Indication: Depression
     Dates: start: 2025, end: 2025
  2. DULOXETINE [Suspect]
     Active Substance: DULOXETINE
     Dates: start: 2025, end: 20250911
  3. PAXIL [Concomitant]
     Active Substance: PAROXETINE HYDROCHLORIDE
     Indication: Depression
     Dates: start: 20240301
  4. PAXIL [Concomitant]
     Active Substance: PAROXETINE HYDROCHLORIDE
     Dates: start: 20240301
  5. APLENZIN [Concomitant]
     Active Substance: BUPROPION HYDROBROMIDE
     Indication: Depression
     Dates: start: 2015
  6. KEPPRA [Concomitant]
     Active Substance: LEVETIRACETAM
     Dates: start: 2015
  7. GABAPENTIN [Concomitant]
     Active Substance: GABAPENTIN
     Indication: Neuralgia
     Dates: start: 2010
  8. Tirosint T4 [Concomitant]
     Indication: Thyroid disorder
     Dosage: GELCAP
     Dates: start: 202405
  9. Liothyronine T3 [Concomitant]
     Indication: Thyroid disorder
     Dates: start: 202405
  10. OMEPRAZOLE [Concomitant]
     Active Substance: OMEPRAZOLE
     Dates: start: 2010
  11. OMEPRAZOLE [Concomitant]
     Active Substance: OMEPRAZOLE
     Dates: start: 202505
  12. ATARAX [Concomitant]
     Active Substance: HYDROXYZINE HYDROCHLORIDE
     Dates: start: 2016
  13. HYDROCORTISONE [Concomitant]
     Active Substance: HYDROCORTISONE
     Indication: Adrenal insufficiency
     Dates: start: 20210527
  14. HYDROCORTISONE [Concomitant]
     Active Substance: HYDROCORTISONE
     Dates: start: 20210527
  15. LORAZEPAM [Concomitant]
     Active Substance: LORAZEPAM
     Indication: Anxiety
     Dosage: 1-3 MG OR AS NEEDED
     Dates: start: 20221208
  16. PRIMIDONE [Concomitant]
     Active Substance: PRIMIDONE
     Indication: Essential tremor
     Dates: start: 202303
  17. BELBUCA [Concomitant]
     Active Substance: BUPRENORPHINE HYDROCHLORIDE
     Indication: Back pain
     Dosage: BUCCAL
     Dates: start: 20230614
  18. RALOXIFENE [Concomitant]
     Active Substance: RALOXIFENE
     Indication: Osteoporosis
     Dates: start: 2023
  19. HYDROCHLOROTHIAZIDE [Concomitant]
     Active Substance: HYDROCHLOROTHIAZIDE
     Indication: Hypercalciuria
     Dates: start: 20221030
  20. HYDROCHLOROTHIAZIDE [Concomitant]
     Active Substance: HYDROCHLOROTHIAZIDE
  21. KETOTIFEN [Concomitant]
     Active Substance: KETOTIFEN
     Dates: start: 20241010
  22. MESALAMINE [Concomitant]
     Active Substance: MESALAMINE
     Indication: Inflammation
     Dates: start: 20241111
  23. MESALAMINE [Concomitant]
     Active Substance: MESALAMINE
  24. AZITHROMYCIN [Concomitant]
     Active Substance: AZITHROMYCIN
     Dates: start: 202411
  25. NYSTATIN [Concomitant]
     Active Substance: NYSTATIN
     Dates: start: 202411
  26. PROGESTERONE [Concomitant]
     Active Substance: PROGESTERONE
     Dosage: GELCAP
     Dates: start: 2017
  27. Est/Test Blend [Concomitant]
     Dosage: 1/2 MG EA
     Route: 061
     Dates: start: 20211018
  28. HUMAN IMMUNOGLOBULIN G [Concomitant]
     Active Substance: HUMAN IMMUNOGLOBULIN G
     Route: 042
  29. EMGALITY [Concomitant]
     Active Substance: GALCANEZUMAB-GNLM
  30. PROLIA [Concomitant]
     Active Substance: DENOSUMAB
     Indication: Osteoporosis
     Dates: start: 202210
  31. RALOXIFENE [Concomitant]
     Active Substance: RALOXIFENE
     Indication: Osteoporosis
     Dates: start: 202210
  32. NORCO [Concomitant]
     Active Substance: ACETAMINOPHEN\HYDROCODONE BITARTRATE
     Indication: Pain
     Dates: start: 20240605
  33. IMITREX [Concomitant]
     Active Substance: SUMATRIPTAN SUCCINATE
     Indication: Migraine
     Dates: start: 1992
  34. NURTEC ODT [Concomitant]
     Active Substance: RIMEGEPANT SULFATE
     Indication: Migraine
     Dates: start: 20210422
  35. ZOFRAN [Concomitant]
     Active Substance: ONDANSETRON HYDROCHLORIDE
     Indication: Nausea
     Dates: start: 202312
  36. PYRIDIUM [Concomitant]
     Active Substance: PHENAZOPYRIDINE
     Indication: Pelvic pain
     Dates: start: 2022
  37. INOSITOL [Concomitant]
     Active Substance: INOSITOL
  38. DL-PHENYLALANINE [Concomitant]
     Active Substance: PHENYLALANINE, DL-
  39. Melatonin PR [Concomitant]
     Dates: start: 20200502
  40. Melatonin PR [Concomitant]
  41. CANNABIDIOL [Concomitant]
     Active Substance: CANNABIDIOL
     Indication: Inflammation
     Dosage: 25-100 MG OILS/SOFTGELS
  42. SalivaStim [Concomitant]
     Indication: Dry mouth
     Dosage: BLEND
  43. Moms DHA [Concomitant]
     Dosage: SOFTGEL, BLEND
     Dates: start: 20220502
  44. Mag L-Threonate [Concomitant]
     Dates: start: 20190825
  45. VitalZymes [Concomitant]
     Dosage: BLEND
     Dates: start: 20220912
  46. AlgaeCal Plus [Concomitant]
     Indication: Osteoporosis
     Dosage: BLEND
     Dates: start: 20230626
  47. Strontium Plus [Concomitant]
     Indication: Osteoporosis
     Dosage: BLEND
     Dates: start: 20230626
  48. Happy Saffron Plus [Concomitant]
     Dosage: BLEND
     Dates: start: 20230714
  49. Gaba Calming Support [Concomitant]
     Dosage: BLEND
     Dates: start: 20230714
  50. MT Promoter [Concomitant]
     Dosage: BLEND
     Dates: start: 20230825
  51. METHYLCOBALAMIN [Concomitant]
     Active Substance: METHYLCOBALAMIN
     Dates: start: 20230825
  52. L Methyl Folate [Concomitant]
     Dates: start: 20240429
  53. PYRIDOXINE HYDROCHLORIDE [Concomitant]
     Active Substance: PYRIDOXINE HYDROCHLORIDE
     Dates: start: 202405
  54. BIOTIN [Concomitant]
     Active Substance: BIOTIN
     Dates: start: 202405
  55. ZINC PICOLINATE [Concomitant]
     Active Substance: ZINC PICOLINATE
     Dates: start: 2023
  56. Ceylon Cinnamon [Concomitant]
     Dates: start: 2024
  57. Cranberry/D-Mannose [Concomitant]
     Dosage: 200/500
     Dates: start: 20210727
  58. Green Coffee Bean Ext [Concomitant]
     Indication: Inflammation
     Dates: start: 20241208
  59. BERBERINE [Concomitant]
     Active Substance: BERBERINE
     Dates: start: 202411
  60. BACILLUS COAGULANS [Concomitant]
     Active Substance: BACILLUS COAGULANS
     Dosage: 25 BIL
     Dates: start: 202411
  61. DIETARY SUPPLEMENT [Concomitant]
     Active Substance: DIETARY SUPPLEMENT
     Dates: start: 20241218
  62. Arjun/Guava Leaf Ext [Concomitant]
     Dosage: 300/200
     Dates: start: 20241223
  63. NAC [Concomitant]
     Dates: start: 202504
  64. Restful Sleep [Concomitant]
     Indication: Insomnia
     Dosage: BLEND
     Dates: start: 202506
  65. NuPlus [Concomitant]
     Dosage: 4 SERVINGS
  66. Fortune [Concomitant]
     Dosage: 2 SERVINGS
  67. Conco [Concomitant]
  68. JOI [Concomitant]
  69. ESE [Concomitant]
  70. Adrenal Cocktail [Concomitant]
  71. CANNABIS SATIVA SUBSP. INDICA TOP [Concomitant]
     Active Substance: CANNABIS SATIVA SUBSP. INDICA TOP

REACTIONS (6)
  - Pain [Unknown]
  - Fatigue [Unknown]
  - Abdominal pain upper [Not Recovered/Not Resolved]
  - Muscle spasms [Not Recovered/Not Resolved]
  - Somnolence [Unknown]
  - Wrong technique in product usage process [Unknown]

NARRATIVE: CASE EVENT DATE: 20250101
